FAERS Safety Report 9670806 (Version 1)
Quarter: 2013Q4

REPORT INFORMATION
  Report Type: Spontaneous
  Country: US (occurrence: None)
  Receive Date: 20131105
  Receipt Date: 20131105
  Transmission Date: 20140711
  Serious: Yes (Other)
  Sender: FDA-Public Use
  Company Number: None

PATIENT
  Age: 74 Year
  Sex: Male
  Weight: 98.88 kg

DRUGS (1)
  1. PROVENGE 1 UNIT DENDREON [Suspect]
     Indication: PROSTATE CANCER METASTATIC
     Dosage: ONE UNIT EVERT OTHER WEEK INTRAVENOUS
     Route: 042
     Dates: start: 20131007, end: 20131104

REACTIONS (2)
  - Chills [None]
  - Chills [None]
